FAERS Safety Report 12295102 (Version 1)
Quarter: 2016Q2

REPORT INFORMATION
  Report Type: Spontaneous
  Country: US (occurrence: US)
  Receive Date: 20160422
  Receipt Date: 20160422
  Transmission Date: 20160815
  Serious: No
  Sender: FDA-Public Use
  Company Number: US-MYLANLABS-2015M1037861

PATIENT
  Sex: Male

DRUGS (1)
  1. INDAPAMIDE TABLETS, USP [Suspect]
     Active Substance: INDAPAMIDE
     Dosage: UNK
     Route: 048

REACTIONS (1)
  - Erythema [Not Recovered/Not Resolved]

NARRATIVE: CASE EVENT DATE: 20151021
